FAERS Safety Report 10553471 (Version 2)
Quarter: 2015Q3

REPORT INFORMATION
  Report Type: Spontaneous
  Country: JO (occurrence: None)
  Receive Date: 20141028
  Receipt Date: 20150717
  Transmission Date: 20151125
  Serious: Yes (Other)
  Sender: FDA-Public Use
  Company Number: 2014-20566

PATIENT
  Sex: Male

DRUGS (1)
  1. EYLEA [Suspect]
     Active Substance: AFLIBERCEPT
     Indication: NEOVASCULAR AGE-RELATED MACULAR DEGENERATION
     Dosage: RIGHT EYE
     Dates: start: 20140909, end: 20140909

REACTIONS (3)
  - Retinal depigmentation [None]
  - Visual acuity reduced [None]
  - Macular scar [None]

NARRATIVE: CASE EVENT DATE: 201409
